FAERS Safety Report 12586761 (Version 1)
Quarter: 2016Q3

REPORT INFORMATION
  Report Type: Spontaneous
  Country: AU (occurrence: AU)
  Receive Date: 20160725
  Receipt Date: 20160725
  Transmission Date: 20161109
  Serious: Yes (Death, Other)
  Sender: FDA-Public Use
  Company Number: AU-BAYER-2016-138383

PATIENT
  Age: 25 Year
  Sex: Male

DRUGS (1)
  1. XOFIGO [Suspect]
     Active Substance: RADIUM RA-223 DICHLORIDE
     Indication: OSTEOSARCOMA

REACTIONS (2)
  - Osteosarcoma [Fatal]
  - Off label use [None]
